FAERS Safety Report 25949977 (Version 1)
Quarter: 2025Q4

REPORT INFORMATION
  Report Type: Spontaneous
  Country: CA (occurrence: CA)
  Receive Date: 20251022
  Receipt Date: 20251022
  Transmission Date: 20260117
  Serious: Yes (Other)
  Sender: TEVA
  Company Number: CA-TEVA-VS-3382533

PATIENT
  Age: 87 Year
  Sex: Female

DRUGS (2)
  1. FENTANYL [Suspect]
     Active Substance: FENTANYL
     Indication: Oesophagogastroduodenoscopy
     Dosage: DOSE FORM:NOT SPECIFIED
     Route: 065
  2. MIDAZOLAM [Concomitant]
     Active Substance: MIDAZOLAM
     Indication: Product used for unknown indication
     Dosage: MIDAZOLAM (UNKNOWN)
     Route: 065

REACTIONS (2)
  - Blood pressure decreased [Unknown]
  - Oxygen saturation abnormal [Unknown]
